FAERS Safety Report 11777956 (Version 1)
Quarter: 2015Q4

REPORT INFORMATION
  Report Type: Spontaneous
  Country: TR (occurrence: TR)
  Receive Date: 20151125
  Receipt Date: 20151125
  Transmission Date: 20160304
  Serious: Yes (Other)
  Sender: FDA-Public Use
  Company Number: PHHY2015TR150286

PATIENT
  Age: 36 Year
  Sex: Female

DRUGS (7)
  1. PROPOFOL. [Concomitant]
     Active Substance: PROPOFOL
     Indication: ANAESTHESIA
     Dosage: 2 MG/KG, UNK
     Route: 065
  2. NEOSTIGMINE [Interacting]
     Active Substance: NEOSTIGMINE
     Indication: ANAESTHESIA
     Dosage: 2 MG, UNK
     Route: 065
  3. SUCCINYLCHOLINE CHLORIDE. [Suspect]
     Active Substance: SUCCINYLCHOLINE CHLORIDE
     Indication: ANAESTHESIA
     Dosage: 1 MG/KG, UNK
     Route: 042
  4. REMIFENTANIL [Concomitant]
     Active Substance: REMIFENTANIL
     Indication: ANAESTHESIA
     Dosage: 0.2 UG/KG, PER MINUTE
     Route: 041
  5. ATROPINE. [Concomitant]
     Active Substance: ATROPINE
     Indication: ANAESTHESIA
     Dosage: 1 MG, UNK
     Route: 065
  6. SEVOFLURANE. [Concomitant]
     Active Substance: SEVOFLURANE
     Indication: ANAESTHESIA
     Route: 065
  7. ROCURONIUM [Concomitant]
     Active Substance: ROCURONIUM BROMIDE
     Indication: ANAESTHESIA
     Dosage: 20 MG, UNK
     Route: 065

REACTIONS (2)
  - Respiratory failure [Recovered/Resolved]
  - Drug interaction [Unknown]
